FAERS Safety Report 6916363 (Version 7)
Quarter: 2013Q3

REPORT INFORMATION
  Report Type: Spontaneous
  Country: US (occurrence: US)
  Receive Date: 20090223
  Receipt Date: 20130924
  Transmission Date: 20140515
  Serious: Yes (Life-Threatening, Disabling)
  Sender: FDA-Public Use
  Company Number: US-ROCHE-613230

PATIENT
  Age: 41 Year
  Sex: Female

DRUGS (9)
  1. MABTHERA [Suspect]
     Indication: DERMATOMYOSITIS
     Dosage: UNK
     Route: 065
  2. MABTHERA [Suspect]
     Dosage: UNK
     Route: 065
  3. METHOTREXATE [Suspect]
     Indication: DERMATOMYOSITIS
     Dosage: 25 MG, 1/WEEK
     Route: 058
  4. PREDNISONE [Suspect]
     Indication: DERMATOMYOSITIS
     Dosage: UNK MG, QD
     Route: 048
  5. INFLIXIMAB [Suspect]
     Indication: DERMATOMYOSITIS
     Dosage: 400 MG, Q8W
     Route: 042
     Dates: start: 20080313, end: 20080821
  6. HYDROCHLOROTHIAZIDE [Concomitant]
     Indication: PRODUCT USED FOR UNKNOWN INDICATION
  7. ACTONEL [Concomitant]
     Indication: PRODUCT USED FOR UNKNOWN INDICATION
  8. FOLATE [Concomitant]
     Indication: PRODUCT USED FOR UNKNOWN INDICATION
  9. TRAMADOL [Concomitant]
     Indication: PRODUCT USED FOR UNKNOWN INDICATION

REACTIONS (1)
  - Progressive multifocal leukoencephalopathy [Not Recovered/Not Resolved]
